FAERS Safety Report 6927727-1 (Version None)
Quarter: 2010Q3

REPORT INFORMATION
  Report Type: 
  Country: None (occurrence: None)
  Receive Date: 20100817
  Receipt Date: 20100802
  Transmission Date: 20110219
  Serious: Yes (Hospitalization, Other)
  Sender: FDA-Public Use
  Company Number: CN-BAYER-201034839GPV

PATIENT
  Age: 48 Year
  Sex: Male

DRUGS (1)
  1. SORAFENIB [Suspect]
     Indication: HEPATIC NEOPLASM MALIGNANT
     Dosage: TOTAL DAILY DOSE: 800 MG  UNIT DOSE: 200 MG
     Route: 048
     Dates: start: 20100719

REACTIONS (4)
  - HAEMORRHOIDS [None]
  - PALMAR-PLANTAR ERYTHRODYSAESTHESIA SYNDROME [None]
  - PYREXIA [None]
  - WHITE BLOOD CELL COUNT INCREASED [None]
